FAERS Safety Report 6154374-4 (Version None)
Quarter: 2009Q2

REPORT INFORMATION
  Report Type: 
  Country: None (occurrence: None)
  Receive Date: 20090414
  Receipt Date: 20090407
  Transmission Date: 20091009
  Serious: Yes (Hospitalization)
  Sender: FDA-Public Use
  Company Number: US-GILEAD-2008-0018271

PATIENT
  Sex: Female
  Weight: 67.192 kg

DRUGS (4)
  1. LETAIRIS [Suspect]
     Indication: PULMONARY ARTERIAL HYPERTENSION
     Route: 048
     Dates: start: 20080508
  2. REVATIO [Concomitant]
     Route: 048
  3. ALDACTONE [Concomitant]
  4. CITRACAL + D [Concomitant]

REACTIONS (6)
  - BRONCHITIS [None]
  - DEAFNESS [None]
  - EAR DISCOMFORT [None]
  - NASAL CONGESTION [None]
  - PARAESTHESIA ORAL [None]
  - PNEUMONIA [None]
